FAERS Safety Report 7810033-0 (Version None)
Quarter: 2011Q4

REPORT INFORMATION
  Report Type: 
  Country: None (occurrence: None)
  Receive Date: 20111012
  Receipt Date: 20110724
  Transmission Date: 20120403
  Serious: No
  Sender: FDA-Public Use
  Company Number: US-GLAXOSMITHKLINE-A0938413A

PATIENT
  Sex: Male

DRUGS (1)
  1. JALYN [Suspect]
     Route: 048

REACTIONS (2)
  - SEMEN VOLUME DECREASED [None]
  - LIBIDO DECREASED [None]
